FAERS Safety Report 25463849 (Version 1)
Quarter: 2025Q2

REPORT INFORMATION
  Report Type: Spontaneous
  Country: US (occurrence: US)
  Receive Date: 20250621
  Receipt Date: 20250621
  Transmission Date: 20250717
  Serious: No
  Sender: AUROBINDO
  Company Number: US-AUROBINDO-AUR-APL-2025-016914

PATIENT
  Age: 84 Year
  Sex: Male
  Weight: 83.46 kg

DRUGS (1)
  1. AZELASTINE HYDROCHLORIDE [Suspect]
     Active Substance: AZELASTINE HYDROCHLORIDE
     Indication: Nasal congestion
     Route: 065

REACTIONS (3)
  - Rhinorrhoea [Unknown]
  - Head discomfort [Unknown]
  - Incorrect dose administered [Unknown]
